FAERS Safety Report 5591779-4 (Version None)
Quarter: 2008Q1

REPORT INFORMATION
  Report Type: 
  Country: None (occurrence: None)
  Receive Date: 20080115
  Receipt Date: 20080103
  Transmission Date: 20080703
  Serious: Yes (Other)
  Sender: FDA-Public Use
  Company Number: B0360430A

PATIENT
  Sex: Female

DRUGS (7)
  1. PAROXETINE HYDROCHLORIDE [Suspect]
     Dosage: 30MG PER DAY
     Route: 048
     Dates: start: 20020227
  2. ZOPICLONE [Concomitant]
     Dosage: 7.5MG PER DAY
     Route: 048
  3. CIPRAMIL [Concomitant]
     Dates: start: 20030110
  4. PROTHIADEN [Concomitant]
     Dates: start: 20050407
  5. FLUOXETINE [Concomitant]
  6. DIAZEPAM [Concomitant]
     Dates: start: 20020722
  7. AMITRIPTYLINE HCL [Concomitant]
     Dates: start: 20050527

REACTIONS (18)
  - AGGRESSION [None]
  - AGITATION [None]
  - ANXIETY [None]
  - CONVULSION [None]
  - DISTURBANCE IN ATTENTION [None]
  - DYSTONIA [None]
  - FEAR [None]
  - HEADACHE [None]
  - LOSS OF LIBIDO [None]
  - MEMORY IMPAIRMENT [None]
  - MUSCLE SPASMS [None]
  - NAUSEA [None]
  - NIGHTMARE [None]
  - PAIN IN EXTREMITY [None]
  - PARAESTHESIA [None]
  - SLEEP DISORDER [None]
  - TREMOR [None]
  - WITHDRAWAL SYNDROME [None]
